FAERS Safety Report 4580151-1 (Version None)
Quarter: 2005Q1

REPORT INFORMATION
  Report Type: 
  Country: None (occurrence: None)
  Receive Date: 20050127
  Receipt Date: 20040928
  Transmission Date: 20050727
  Serious: No
  Sender: FDA-Public Use
  Company Number: USA040979537

PATIENT
  Age: 7 Year
  Sex: Male

DRUGS (1)
  1. STRATTERA [Suspect]
     Dosage: 25 MG IN THE EVENING
     Dates: start: 20040918

REACTIONS (8)
  - DECREASED APPETITE [None]
  - FEELING ABNORMAL [None]
  - LACRIMATION INCREASED [None]
  - NAUSEA [None]
  - NIGHT SWEATS [None]
  - RETCHING [None]
  - SOMNOLENCE [None]
  - STOMACH DISCOMFORT [None]
